FAERS Safety Report 18789185 (Version 2)
Quarter: 2022Q1

REPORT INFORMATION
  Report Type: Other
  Country: US (occurrence: US)
  Receive Date: 20210125
  Receipt Date: 20220123
  Transmission Date: 20220423
  Serious: No
  Sender: FDA-Public Use
  Company Number: US-ACORDA-ACO_165771_2020

PATIENT
  Sex: Female

DRUGS (32)
  1. AMPYRA [Suspect]
     Active Substance: DALFAMPRIDINE
     Indication: Multiple sclerosis
     Dosage: 10 MILLIGRAM, BID
     Route: 048
     Dates: start: 20190304
  2. AMPYRA [Suspect]
     Active Substance: DALFAMPRIDINE
     Indication: Gait disturbance
  3. BETASERON [Concomitant]
     Active Substance: INTERFERON BETA-1B
     Indication: Product used for unknown indication
     Dosage: 0.3 MG VIAL FOR INECTION KIT (INJECT 0.25 UNDER THE SKIN EVERY OTHER DAY)
     Route: 065
  4. AMANTADINE [Concomitant]
     Active Substance: AMANTADINE
     Indication: Product used for unknown indication
     Dosage: 100 MILLIGRAM, BID
     Route: 048
     Dates: start: 20200711
  5. DILTIAZEM [Concomitant]
     Active Substance: DILTIAZEM
     Indication: Product used for unknown indication
     Dosage: 240 MILLIGRAM, QD
     Route: 048
     Dates: start: 20200616
  6. XARELTO [Concomitant]
     Active Substance: RIVAROXABAN
     Indication: Product used for unknown indication
     Dosage: 20 MILLIGRAM, WITH DINNER
     Route: 048
     Dates: start: 20200524
  7. PROAIR HFA [Concomitant]
     Active Substance: ALBUTEROL SULFATE
     Indication: Product used for unknown indication
     Dosage: UNK
     Route: 065
  8. LYRICA [Concomitant]
     Active Substance: PREGABALIN
     Indication: Product used for unknown indication
     Dosage: (25 MG) 1 DOSAGE FORM, TID
     Route: 048
     Dates: start: 20190819
  9. LYRICA [Concomitant]
     Active Substance: PREGABALIN
     Dosage: (300 MG), 1 DOSAGE FORM, BID
     Route: 048
     Dates: start: 20191202
  10. LYRICA [Concomitant]
     Active Substance: PREGABALIN
     Dosage: (300 MG),1 DOSAGE FORM, BID
     Route: 048
     Dates: start: 20200318
  11. LYRICA [Concomitant]
     Active Substance: PREGABALIN
     Dosage: (50 MG), 1 DOSAGE FORM, TID
     Route: 048
     Dates: start: 20190919
  12. ALPRAZOLAM [Concomitant]
     Active Substance: ALPRAZOLAM
     Indication: Product used for unknown indication
     Dosage: 0.25 MILLIGRAM, EVERY NIGHT AT BEDTIME AS NEEDED
     Route: 048
     Dates: start: 20200318
  13. FUROSEMIDE [Concomitant]
     Active Substance: FUROSEMIDE
     Indication: Product used for unknown indication
     Dosage: (20 MG), 3 DOSAGE FORM, BID
     Route: 048
     Dates: start: 20191220
  14. FUROSEMIDE [Concomitant]
     Active Substance: FUROSEMIDE
     Dosage: (40 MG) 1 DOSAGE FORM, BID
     Route: 048
     Dates: start: 20190319
  15. FUROSEMIDE [Concomitant]
     Active Substance: FUROSEMIDE
     Dosage: (80 MG) 1 DOSAGE FORM, BID
     Route: 048
     Dates: start: 20200523
  16. ALBUTEROL [Concomitant]
     Active Substance: ALBUTEROL
     Indication: Wheezing
     Dosage: INHALE 2 PUFFS BY MOUTH EVERY 4 HOURS AS NEEDED
     Dates: start: 20200414
  17. ATORVASTATIN [Concomitant]
     Active Substance: ATORVASTATIN
     Indication: Wheezing
     Dosage: 40 MILLIGRAM, AT BEDTIME
     Route: 048
     Dates: start: 20191104
  18. DIAZEPAM [Concomitant]
     Active Substance: DIAZEPAM
     Indication: Wheezing
     Dosage: 5 MILLIGRAM (TAKE 1 TABLET BY MOUTH 1 HOUR BEFORE PROCEDURE, MAY TAKE 1 ADDITIONAL TABLET AT TIME OF
     Route: 048
     Dates: start: 20190911
  19. OXYCODONE AND ACETAMINOPHEN [Concomitant]
     Active Substance: ACETAMINOPHEN\OXYCODONE HYDROCHLORIDE
     Indication: Pain
     Dosage: 1 DOSAGE FORM, Q 6 HRS (5-325 MG)
     Route: 048
     Dates: start: 20191023
  20. OXYCODONE AND ACETAMINOPHEN [Concomitant]
     Active Substance: ACETAMINOPHEN\OXYCODONE HYDROCHLORIDE
     Dosage: (5-325 MG) TAKE 1 TO 2 TABLETS EVERY 6 HOURS AS NEEDED
     Route: 048
     Dates: start: 20190911
  21. OXYCODONE AND ACETAMINOPHEN [Concomitant]
     Active Substance: ACETAMINOPHEN\OXYCODONE HYDROCHLORIDE
     Dosage: (5-325 MG) 1 TABLET EVERY 6 HOURS AS NEEDED
     Route: 048
     Dates: start: 20190819
  22. POTASSIUM CHLORIDE [Concomitant]
     Active Substance: POTASSIUM CHLORIDE
     Indication: Product used for unknown indication
     Dosage: (20 MEQ), 1 DOSAGE FORM, BID
     Route: 048
     Dates: start: 20200121
  23. POTASSIUM CHLORIDE [Concomitant]
     Active Substance: POTASSIUM CHLORIDE
     Dosage: (20 MEQ), 1 DOSAGE FORM, BID
     Route: 048
     Dates: start: 20200823
  24. PREGABALIN [Concomitant]
     Active Substance: PREGABALIN
     Indication: Product used for unknown indication
     Dosage: 150 MILLIGRAM, BID
     Route: 048
     Dates: start: 20200415
  25. SUMATRIPTAN [Concomitant]
     Active Substance: SUMATRIPTAN
     Indication: Headache
     Dosage: 100 MILLIGRAM, PRN
     Route: 048
     Dates: start: 20190708
  26. TIZANIDINE [Concomitant]
     Active Substance: TIZANIDINE
     Indication: Product used for unknown indication
     Dosage: 4 MILLIGRAM (EVERY 8 HOURS AS NEEDED)
     Route: 048
     Dates: start: 20200121
  27. TRIAMCINOLONE [Concomitant]
     Active Substance: TRIAMCINOLONE
     Indication: Product used for unknown indication
     Dosage: 0.5 PERCENT OINTMENT 15 GM, APPLY EXTERNALLY TO THE AFFECTED AREA TWICE DAILY FOR 21 DAYS
     Route: 065
     Dates: start: 20190612
  28. ASPIRIN [Concomitant]
     Active Substance: ASPIRIN
     Indication: Product used for unknown indication
     Dosage: UNK
     Route: 065
  29. MINERALS\VITAMINS [Concomitant]
     Active Substance: MINERALS\VITAMINS
     Indication: Product used for unknown indication
     Dosage: UNK
     Route: 065
  30. CHONDROITIN SULFATE A\GLUCOSAMINE [Concomitant]
     Active Substance: CHONDROITIN SULFATE A\GLUCOSAMINE
     Indication: Product used for unknown indication
     Dosage: R/S CAPLETS
     Route: 065
  31. VITAMIN C [Concomitant]
     Active Substance: ASCORBIC ACID
     Indication: Product used for unknown indication
     Dosage: 1000 MILLIGRAM
     Route: 065
  32. VITAMIN D [Concomitant]
     Active Substance: VITAMIN D NOS
     Indication: Product used for unknown indication
     Dosage: 1000 INTERNATIONAL UNIT
     Route: 065

REACTIONS (7)
  - Pain [Unknown]
  - Hypoaesthesia [Unknown]
  - Amblyopia [Unknown]
  - Eye movement disorder [Unknown]
  - Insomnia [Not Recovered/Not Resolved]
  - Fatigue [Unknown]
  - Paraesthesia [Unknown]
